FAERS Safety Report 8906516 (Version 2)
Quarter: 2013Q1

REPORT INFORMATION
  Report Type: Spontaneous
  Country: FR (occurrence: None)
  Receive Date: 20121108
  Receipt Date: 20130208
  Transmission Date: 20140127
  Serious: Yes (Hospitalization)
  Sender: FDA-Public Use
  Company Number: 2012AT000734

PATIENT
  Age: 68 Year
  Sex: Male

DRUGS (2)
  1. EDEX [Suspect]
     Indication: PRODUCT USED FOR UNKNOWN INDICATION
     Dosage: ; ICAN
     Dates: start: 20120614
  2. TINZAPARIN SODIUM [Concomitant]

REACTIONS (4)
  - Portal vein thrombosis [None]
  - Mesenteric panniculitis [None]
  - Lymphadenopathy [None]
  - Inflammation [None]
